FAERS Safety Report 18990556 (Version 2)
Quarter: 2025Q3

REPORT INFORMATION
  Report Type: Spontaneous
  Country: EU (occurrence: EU)
  Receive Date: 20210310
  Receipt Date: 20250717
  Transmission Date: 20251021
  Serious: Yes (Hospitalization, Other)
  Sender: AUROBINDO
  Company Number: EU-SA-2021SA048650

PATIENT
  Age: 73 Year
  Sex: Female

DRUGS (5)
  1. GABAPENTIN [Suspect]
     Active Substance: GABAPENTIN
     Indication: Product used for unknown indication
     Dosage: 600 MILLIGRAM, ONCE A DAY
     Route: 065
     Dates: start: 2019
  2. CLONAZEPAM [Suspect]
     Active Substance: CLONAZEPAM
     Indication: Product used for unknown indication
     Dosage: 2 MILLIGRAM, ONCE A DAY
     Route: 065
     Dates: start: 2019
  3. SULPIRIDE [Suspect]
     Active Substance: SULPIRIDE
     Indication: Product used for unknown indication
     Dosage: 50 MILLIGRAM, ONCE A DAY
     Route: 065
     Dates: start: 2019
  4. TIANEPTINE [Suspect]
     Active Substance: TIANEPTINE
     Indication: Product used for unknown indication
     Dosage: 37.5 MILLIGRAM, ONCE A DAY
     Route: 065
     Dates: start: 2019
  5. ZOPICLONE [Suspect]
     Active Substance: ZOPICLONE
     Indication: Product used for unknown indication
     Dosage: 7.5 MILLIGRAM, ONCE A DAY
     Route: 065
     Dates: start: 2019

REACTIONS (11)
  - Drug abuse [Unknown]
  - Cognitive disorder [Unknown]
  - Treatment noncompliance [Unknown]
  - Depressive symptom [Unknown]
  - Depression [Unknown]
  - Psychomotor hyperactivity [Unknown]
  - Anhedonia [Unknown]
  - Anxiety [Unknown]
  - Affect lability [Unknown]
  - Insomnia [Unknown]
  - Persecutory delusion [Unknown]

NARRATIVE: CASE EVENT DATE: 20190101
